FAERS Safety Report 26008857 (Version 1)
Quarter: 2025Q4

REPORT INFORMATION
  Report Type: Report from Study
  Country: EU (occurrence: EU)
  Receive Date: 20251106
  Receipt Date: 20251106
  Transmission Date: 20260117
  Serious: Yes (Other)
  Sender: ABBVIE
  Company Number: EU-ABBVIE-6353454

PATIENT
  Age: 67 Year
  Sex: Female

DRUGS (4)
  1. CARBIDOPA\LEVODOPA [Suspect]
     Active Substance: CARBIDOPA\LEVODOPA
     Indication: Parkinson^s disease
     Dosage: LAST ADMIN DATE: JUN 2025
     Route: 058
     Dates: start: 20250616
  2. CARBIDOPA\LEVODOPA [Suspect]
     Active Substance: CARBIDOPA\LEVODOPA
     Dosage: DOSE DECREASED
     Route: 058
     Dates: start: 202506, end: 20250822
  3. CARBIDOPA\LEVODOPA [Suspect]
     Active Substance: CARBIDOPA\LEVODOPA
     Dosage: 0.30ML PER HOUR, LAST ADMIN DATE: SEP 2025
     Route: 058
     Dates: start: 20250915
  4. CARBIDOPA\LEVODOPA [Suspect]
     Active Substance: CARBIDOPA\LEVODOPA
     Dosage: DOSE ADJUSTED,
     Route: 058
     Dates: start: 202509

REACTIONS (12)
  - Basal cell carcinoma [Not Recovered/Not Resolved]
  - Depression [Not Recovered/Not Resolved]
  - Off label use [Recovered/Resolved]
  - Hallucination [Recovered/Resolved]
  - On and off phenomenon [Not Recovered/Not Resolved]
  - Delirium [Recovered/Resolved]
  - Infusion site cellulitis [Recovered/Resolved]
  - Catheter site nodule [Not Recovered/Not Resolved]
  - Hallucination [Recovered/Resolved]
  - Agitation [Recovered/Resolved]
  - Aggression [Recovered/Resolved]
  - Off label use [Recovered/Resolved]

NARRATIVE: CASE EVENT DATE: 20250101
